FAERS Safety Report 11583646 (Version 1)
Quarter: 2015Q3

REPORT INFORMATION
  Report Type: Spontaneous
  Country: US (occurrence: None)
  Receive Date: 20150930
  Receipt Date: 20150930
  Transmission Date: 20151125
  Serious: Yes (Hospitalization)
  Sender: FDA-Public Use
  Company Number: None

PATIENT
  Age: 77 Year
  Sex: Male
  Weight: 86.9 kg

DRUGS (1)
  1. SULFAMETHOXAZOLE/TRIMETHOPRIM [Suspect]
     Active Substance: SULFAMETHOXAZOLE\TRIMETHOPRIM
     Route: 048
     Dates: start: 20150723, end: 20150729

REACTIONS (7)
  - Dysphagia [None]
  - Diarrhoea [None]
  - Pruritus [None]
  - Odynophagia [None]
  - Urticaria [None]
  - Rash maculo-papular [None]
  - Dehydration [None]

NARRATIVE: CASE EVENT DATE: 20150728
